FAERS Safety Report 5832443-3 (Version None)
Quarter: 2008Q3

REPORT INFORMATION
  Report Type: 
  Country: None (occurrence: None)
  Receive Date: 20080730
  Receipt Date: 20080718
  Transmission Date: 20090109
  Serious: Yes (Hospitalization, Other)
  Sender: FDA-Public Use
  Company Number: 2008S1012618

PATIENT
  Age: 43 Year
  Sex: Female
  Weight: 98.8842 kg

DRUGS (3)
  1. FELODIPINE [Suspect]
     Indication: HYPERTENSION
     Dosage: 5 MG; DAILY; ORAL, 10 MG; DAILY; ORAL
     Route: 048
     Dates: start: 20080701, end: 20080702
  2. FELODIPINE [Suspect]
     Indication: HYPERTENSION
     Dosage: 5 MG; DAILY; ORAL, 10 MG; DAILY; ORAL
     Route: 048
     Dates: start: 20080702, end: 20080703
  3. FELODIPINE [Suspect]

REACTIONS (7)
  - ANAEMIA [None]
  - ANXIETY [None]
  - BLOOD PRESSURE INCREASED [None]
  - DRUG INEFFECTIVE [None]
  - DYSPNOEA [None]
  - HEART RATE INCREASED [None]
  - PALPITATIONS [None]
